FAERS Safety Report 6978470-4 (Version None)
Quarter: 2010Q3

REPORT INFORMATION
  Report Type: 
  Country: None (occurrence: None)
  Receive Date: 20100913
  Receipt Date: 20100903
  Transmission Date: 20110219
  Serious: Yes (Death, Hospitalization)
  Sender: FDA-Public Use
  Company Number: IT-PFIZER INC-2010084548

PATIENT
  Age: 70 Year
  Sex: Female

DRUGS (11)
  1. CAMPTOSAR [Suspect]
     Indication: METASTASIS
     Dosage: 180 MG, CYCLIC
     Route: 042
     Dates: start: 20100616, end: 20100616
  2. FLUOROURACIL [Suspect]
     Indication: METASTASIS
     Dosage: 1000 MG, CYCLIC
     Route: 042
     Dates: start: 20100616, end: 20100616
  3. CALCIUM FOLINATE [Suspect]
     Indication: METASTASIS
     Dosage: 180 MG, CYCLIC
     Route: 042
     Dates: start: 20100616, end: 20100616
  4. OMEPRAZOLE [Concomitant]
     Dosage: 20 MG, UNK
  5. DEXAMETHASONE [Concomitant]
     Dosage: 2 ML
     Route: 042
     Dates: start: 20100616, end: 20100616
  6. GRANISETRON [Concomitant]
     Dosage: 1 UNIT
     Route: 042
     Dates: start: 20100616, end: 20100616
  7. SOLDESAM [Concomitant]
     Dosage: 1 UNIT
     Route: 030
     Dates: start: 20100504, end: 20100625
  8. KEPPRA [Concomitant]
     Dosage: 1500 MG
     Dates: start: 20100101, end: 20100625
  9. LENOGRASTIM [Concomitant]
     Dosage: 1 UNIT
     Route: 058
     Dates: start: 20100616, end: 20100623
  10. PERINDOPRIL ERBUMINE [Concomitant]
     Dosage: 5 MG
  11. TIMOPTOL [Concomitant]

REACTIONS (5)
  - ANAEMIA [None]
  - HYPERPYREXIA [None]
  - LEUKOPENIA [None]
  - PNEUMONIA [None]
  - SEPTIC SHOCK [None]
